FAERS Safety Report 5185168-4 (Version None)
Quarter: 2006Q4

REPORT INFORMATION
  Report Type: 
  Country: None (occurrence: None)
  Receive Date: 20061220
  Receipt Date: 20060614
  Transmission Date: 20070319
  Serious: No
  Sender: FDA-Public Use
  Company Number: US-GLAXOSMITHKLINE-A0608947A

PATIENT
  Age: 60 Year
  Sex: Female

DRUGS (4)
  1. NICODERM CQ [Suspect]
  2. PAXIL [Concomitant]
  3. LAMICTAL [Concomitant]
  4. ENTOCORT [Concomitant]

REACTIONS (3)
  - ABNORMAL DREAMS [None]
  - CONTUSION [None]
  - RASH ERYTHEMATOUS [None]
